FAERS Safety Report 4383770-0 (Version None)
Quarter: 2004Q2

REPORT INFORMATION
  Report Type: 
  Country: None (occurrence: None)
  Receive Date: 20040608
  Receipt Date: 20030701
  Transmission Date: 20050107
  Serious: Yes (Hospitalization)
  Sender: FDA-Public Use
  Company Number: 200312234BCC

PATIENT
  Age: 73 Year
  Sex: Male
  Weight: 83.9154 kg

DRUGS (5)
  1. ALEVE [Suspect]
     Indication: PAIN
     Dosage: 440 MG, BID, ORAL
     Route: 048
     Dates: start: 20030629
  2. ALEVE [Suspect]
     Indication: TOOTH INJURY
     Dosage: 440 MG, BID, ORAL
     Route: 048
     Dates: start: 20030629
  3. NIACIN [Concomitant]
  4. LIPITOR [Concomitant]
  5. MULTIVITAMIN [Concomitant]

REACTIONS (4)
  - DYSPEPSIA [None]
  - GASTROINTESTINAL ULCER [None]
  - HYPERHIDROSIS [None]
  - STOMACH DISCOMFORT [None]
